FAERS Safety Report 4899814-3 (Version None)
Quarter: 2006Q1

REPORT INFORMATION
  Report Type: 
  Country: None (occurrence: None)
  Receive Date: 20060118
  Receipt Date: 20050920
  Transmission Date: 20060701
  Serious: No
  Sender: FDA-Public Use
  Company Number: 2005001852

PATIENT
  Sex: Female

DRUGS (2)
  1. TARCEVA [Suspect]
     Indication: BREAST CANCER
     Dosage: 150MG (QD), ORAL
     Route: 048
     Dates: start: 20050817, end: 20050901
  2. TARCEVA [Suspect]
     Indication: BREAST CANCER
     Dosage: 150MG (QD), ORAL
     Route: 048
     Dates: start: 20050921

REACTIONS (8)
  - BLISTER [None]
  - DIARRHOEA [None]
  - DYSPHONIA [None]
  - ERYTHEMA [None]
  - EYE SWELLING [None]
  - LACRIMATION INCREASED [None]
  - MOUTH ULCERATION [None]
  - RASH [None]
